FAERS Safety Report 6917192-2 (Version None)
Quarter: 2010Q3

REPORT INFORMATION
  Report Type: 
  Country: None (occurrence: None)
  Receive Date: 20100810
  Receipt Date: 20100730
  Transmission Date: 20110219
  Serious: Yes (Life-Threatening)
  Sender: FDA-Public Use
  Company Number: US-TYCO HEALTHCARE/MALLINCKRODT-T201001737

PATIENT
  Age: 9 Week
  Sex: Male
  Weight: 2 kg

DRUGS (3)
  1. METHADOSE [Suspect]
     Dosage: 10 TIMES ORDERED AMOUNT
     Route: 048
  2. METHADOSE [Suspect]
     Dosage: 0.05 MG/KG EVERY 6 HOURS
  3. FENTANYL [Suspect]
     Dosage: 2 TO 3  ?G/KG PER HOUR
     Route: 042

REACTIONS (2)
  - ACCIDENTAL OVERDOSE [None]
  - MUSCLE RIGIDITY [None]
